FAERS Safety Report 7345264-X (Version None)
Quarter: 2011Q1

REPORT INFORMATION
  Report Type: 
  Country: None (occurrence: None)
  Receive Date: 20110310
  Receipt Date: 20110301
  Transmission Date: 20110831
  Serious: Yes (Hospitalization, Other)
  Sender: FDA-Public Use
  Company Number: CA-ELI_LILLY_AND_COMPANY-CA201103000118

PATIENT
  Sex: Female
  Weight: 81 kg

DRUGS (4)
  1. ZYPREXA [Suspect]
     Dosage: 2.5 MG, 2/D
     Route: 048
     Dates: start: 20010102
  2. CLONAZEPAM [Concomitant]
     Dosage: 0.5 MG, UNK
  3. PAXIL CR [Concomitant]
     Dosage: 20 MG, DAILY (1/D)
  4. SEROQUEL [Concomitant]

REACTIONS (7)
  - OPTIC ISCHAEMIC NEUROPATHY [None]
  - CEREBROVASCULAR ACCIDENT [None]
  - NEUROPATHY PERIPHERAL [None]
  - DYSLIPIDAEMIA [None]
  - DIABETES MELLITUS [None]
  - HYPERTENSION [None]
  - BLINDNESS [None]
